FAERS Safety Report 14902411 (Version 1)
Quarter: 2018Q2

REPORT INFORMATION
  Report Type: Spontaneous
  Country: US (occurrence: US)
  Receive Date: 20180516
  Receipt Date: 20180516
  Transmission Date: 20180711
  Serious: Yes (Other)
  Sender: FDA-Public Use
  Company Number: US-ARBOR PHARMACEUTICALS, LLC-US-2018ARB000562

PATIENT

DRUGS (3)
  1. POTASSIUM CHLORIDE. [Concomitant]
     Active Substance: POTASSIUM CHLORIDE
     Indication: BLOOD POTASSIUM DECREASED
     Dosage: 20 MEQ, BID
     Route: 048
  2. ALLOPURINOL. [Suspect]
     Active Substance: ALLOPURINOL
     Indication: BLOOD URIC ACID INCREASED
     Dosage: UNK
     Route: 048
  3. EDARBYCLOR [Suspect]
     Active Substance: AZILSARTAN KAMEDOXOMIL\CHLORTHALIDONE
     Indication: BLOOD PRESSURE MANAGEMENT
     Dosage: 1 DF, QD
     Route: 048

REACTIONS (11)
  - Dehydration [Unknown]
  - Vertigo [Unknown]
  - Heart rate irregular [Recovered/Resolved]
  - Blood potassium decreased [Unknown]
  - Heart sounds abnormal [Unknown]
  - Dizziness [Unknown]
  - Arrhythmia [Unknown]
  - Blood uric acid increased [Unknown]
  - Electrolyte imbalance [Unknown]
  - Nephrolithiasis [Unknown]
  - Diarrhoea [Unknown]
